FAERS Safety Report 6125231-4 (Version None)
Quarter: 2009Q1

REPORT INFORMATION
  Report Type: 
  Country: None (occurrence: None)
  Receive Date: 20090320
  Receipt Date: 20090310
  Transmission Date: 20090719
  Serious: Yes (Hospitalization)
  Sender: FDA-Public Use
  Company Number: DE-RANBAXY-2009RR-22620

PATIENT
  Age: 28 Year
  Sex: Female
  Weight: 65 kg

DRUGS (2)
  1. CEFUROXIME [Suspect]
     Indication: TONSILLITIS
     Dosage: 250 MG, BID
     Route: 048
     Dates: start: 20080819, end: 20080822
  2. PENICILLIN V [Suspect]
     Indication: TONSILLITIS
     Dosage: 1 DF, TID
     Route: 048
     Dates: start: 20080814, end: 20080819

REACTIONS (2)
  - DIARRHOEA [None]
  - DRUG INTERACTION [None]
